FAERS Safety Report 4785713-4 (Version None)
Quarter: 2005Q3

REPORT INFORMATION
  Report Type: 
  Country: None (occurrence: None)
  Receive Date: 20050929
  Receipt Date: 20050920
  Transmission Date: 20060218
  Serious: Yes (Hospitalization)
  Sender: FDA-Public Use
  Company Number: 200433

PATIENT
  Age: 44 Year
  Sex: Male
  Weight: 74.8435 kg

DRUGS (2)
  1. AVONEX [Suspect]
     Indication: MULTIPLE SCLEROSIS
     Dosage: 30 UG; QW; IM
     Route: 030
     Dates: start: 20030801
  2. BACLOFEN [Concomitant]

REACTIONS (9)
  - COORDINATION ABNORMAL [None]
  - DISLOCATION OF JOINT PROSTHESIS [None]
  - JOINT SPRAIN [None]
  - LOWER LIMB FRACTURE [None]
  - PATELLA FRACTURE [None]
  - PRESSURE OF SPEECH [None]
  - ROAD TRAFFIC ACCIDENT [None]
  - VISUAL DISTURBANCE [None]
  - WEIGHT DECREASED [None]
